FAERS Safety Report 7288715-1 (Version None)
Quarter: 2011Q1

REPORT INFORMATION
  Report Type: 
  Country: None (occurrence: None)
  Receive Date: 20110211
  Receipt Date: 20110128
  Transmission Date: 20110831
  Serious: Yes (Hospitalization, Other)
  Sender: FDA-Public Use
  Company Number: PHFR2011IE01001

PATIENT
  Sex: Female

DRUGS (2)
  1. CLOZARIL [Suspect]
     Indication: SCHIZOPHRENIA
     Dosage: UNK
     Route: 048
     Dates: start: 19980427
  2. ANTIBIOTICS [Suspect]
     Dosage: UNK
     Dates: start: 20110101

REACTIONS (6)
  - FIBRIN D DIMER INCREASED [None]
  - DYSPNOEA [None]
  - FATIGUE [None]
  - MALAISE [None]
  - LUNG DISORDER [None]
  - PULMONARY EMBOLISM [None]
